FAERS Safety Report 24608543 (Version 1)
Quarter: 2024Q4

REPORT INFORMATION
  Report Type: Spontaneous
  Country: US (occurrence: US)
  Receive Date: 20241112
  Receipt Date: 20241112
  Transmission Date: 20250115
  Serious: Yes (Life-Threatening, Other)
  Sender: MEDLINE INDUSTRIES, LP
  Company Number: US-Medline Industries, LP-2164911

PATIENT
  Age: 51 Year
  Sex: Female
  Weight: 90.909 kg

DRUGS (1)
  1. PETROLEUM JELLY (WHITE PETROLATUM) [Suspect]
     Active Substance: WHITE PETROLATUM
     Dates: start: 20241031, end: 20241031

REACTIONS (1)
  - Anaphylactic reaction [Recovered/Resolved]

NARRATIVE: CASE EVENT DATE: 20241031
